FAERS Safety Report 6742883-6 (Version None)
Quarter: 2010Q2

REPORT INFORMATION
  Report Type: 
  Country: None (occurrence: None)
  Receive Date: 20100527
  Receipt Date: 20100519
  Transmission Date: 20101027
  Serious: Yes (Hospitalization, Other)
  Sender: FDA-Public Use
  Company Number: US-BIOGENIDEC-2010BI004675

PATIENT
  Age: 28 Year
  Sex: Female

DRUGS (1)
  1. TYSABRI [Suspect]
     Indication: MULTIPLE SCLEROSIS
     Route: 042
     Dates: start: 20091124, end: 20100201

REACTIONS (5)
  - OVARIAN CYST RUPTURED [None]
  - OVARIAN MASS [None]
  - URINARY RETENTION [None]
  - UTERINE INFLAMMATION [None]
  - VAGINAL INFECTION [None]
